FAERS Safety Report 4689842-5 (Version None)
Quarter: 2005Q2

REPORT INFORMATION
  Report Type: 
  Country: None (occurrence: None)
  Receive Date: 20050608
  Receipt Date: 20050207
  Transmission Date: 20051028
  Serious: No
  Sender: FDA-Public Use
  Company Number: 2005-BP-01993BP

PATIENT
  Age: 62 Year
  Sex: Male

DRUGS (2)
  1. SPIRIVA [Suspect]
     Dosage: NR (18 MCG), IH
     Route: 055
  2. SPIRIVA [Suspect]

REACTIONS (1)
  - DRUG INEFFECTIVE [None]
